FAERS Safety Report 20151082 (Version 1)
Quarter: 2021Q4

REPORT INFORMATION
  Report Type: Spontaneous
  Country: US (occurrence: None)
  Receive Date: 20211204
  Receipt Date: 20211204
  Transmission Date: 20220303
  Serious: No
  Sender: FDA-Public Use
  Company Number: None

PATIENT
  Age: 78 Year
  Sex: Male
  Weight: 94 kg

DRUGS (1)
  1. CASIRIVIMAB\IMDEVIMAB [Suspect]
     Active Substance: CASIRIVIMAB\IMDEVIMAB
     Dosage: OTHER QUANTITY : 600MG/600MG;?FREQUENCY : ONCE;?
     Route: 042
     Dates: start: 20211021, end: 20211021

REACTIONS (5)
  - Cardiac arrest [None]
  - Ventricular tachycardia [None]
  - Coronary arterial stent insertion [None]
  - Cardiac pacemaker insertion [None]
  - Hypertension [None]

NARRATIVE: CASE EVENT DATE: 20211021
